FAERS Safety Report 10204021 (Version 2)
Quarter: 2014Q2

REPORT INFORMATION
  Report Type: Spontaneous
  Country: DK (occurrence: DK)
  Receive Date: 20140529
  Receipt Date: 20140606
  Transmission Date: 20141212
  Serious: Yes (Hospitalization)
  Sender: FDA-Public Use
  Company Number: DK-PFIZER INC-2014141360

PATIENT
  Age: 62 Year
  Sex: Female

DRUGS (8)
  1. FARMORUBICIN [Suspect]
     Indication: BREAST CANCER
     Dosage: UNK
     Dates: start: 20090126, end: 20090126
  2. FARMORUBICIN [Suspect]
     Dosage: UNK
     Dates: start: 20090216, end: 20090216
  3. FARMORUBICIN [Suspect]
     Dosage: UNK
     Dates: start: 20090309, end: 20090309
  4. HERCEPTIN [Suspect]
     Indication: BREAST CANCER
  5. TAXOTERE [Concomitant]
     Indication: BREAST CANCER
  6. SENDOXAN [Concomitant]
     Indication: BREAST CANCER
     Dosage: UNK
     Dates: start: 20090126, end: 20090126
  7. SENDOXAN [Concomitant]
     Dosage: UNK
     Dates: start: 20090216, end: 20090216
  8. SENDOXAN [Concomitant]
     Dosage: UNK
     Dates: start: 20090309, end: 20090309

REACTIONS (2)
  - Cardiac failure [Not Recovered/Not Resolved]
  - Dyspnoea [Recovered/Resolved]
